FAERS Safety Report 7961447-X (Version None)
Quarter: 2011Q4

REPORT INFORMATION
  Report Type: 
  Country: None (occurrence: None)
  Receive Date: 20111202
  Receipt Date: 20111121
  Transmission Date: 20120403
  Serious: Yes (Life-Threatening, Hospitalization, Other)
  Sender: FDA-Public Use
  Company Number: 2011P1009080

PATIENT
  Age: 41 Year
  Sex: Male

DRUGS (3)
  1. ETHANOL (NO PREF. NAME) [Suspect]
  2. IVERMECTIN (NO PREF. NAME) [Suspect]
     Indication: FILARIASIS LYMPHATIC
     Dosage: 4 TABLETS; ; PO
     Route: 048
     Dates: start: 20110907
  3. ALBENDAZOLE (NO PREF. NAME) [Suspect]
     Indication: FILARIASIS LYMPHATIC
     Dosage: 1 TABLET; ;PO
     Route: 048
     Dates: start: 20110907

REACTIONS (7)
  - DIARRHOEA [None]
  - CONJUNCTIVAL HAEMORRHAGE [None]
  - PYREXIA [None]
  - ASTHENIA [None]
  - ALCOHOL POISONING [None]
  - COMA [None]
  - ENCEPHALOPATHY [None]
